FAERS Safety Report 7345111-6 (Version None)
Quarter: 2011Q1

REPORT INFORMATION
  Report Type: 
  Country: None (occurrence: None)
  Receive Date: 20110310
  Receipt Date: 20110228
  Transmission Date: 20110831
  Serious: Yes (Hospitalization)
  Sender: FDA-Public Use
  Company Number: JP-ELI_LILLY_AND_COMPANY-JP201102001402

PATIENT
  Age: 61 Year
  Sex: Female

DRUGS (9)
  1. CYMBALTA [Suspect]
     Dosage: 40 MG, DAILY (1/D)
     Route: 048
     Dates: start: 20101028, end: 20101107
  2. CYMBALTA [Suspect]
     Dosage: 20 MG, DAILY (1/D)
     Route: 048
     Dates: start: 20101108, end: 20101110
  3. VALPROATE SODIUM [Concomitant]
     Dosage: 600 MG, DAILY (1/D)
     Dates: end: 20101213
  4. MAGNESIUM OXIDE [Concomitant]
     Dosage: 1 G, DAILY (1/D)
  5. YOKUKAN-SAN [Concomitant]
     Dosage: 7.5 G, DAILY (1/D)
     Route: 048
     Dates: end: 20101213
  6. BIPERIDEN HYDROCHLORIDE TAB [Concomitant]
     Indication: EXTRAPYRAMIDAL DISORDER
     Dosage: 3 MG, DAILY (1/D)
     Dates: start: 20101023, end: 20101213
  7. RISPERDONE [Concomitant]
     Dosage: 3 ML, DAILY (1/D)
  8. CYMBALTA [Suspect]
     Indication: DEPRESSION
     Dosage: 20 MG, DAILY (1/D)
     Route: 048
     Dates: start: 20101023, end: 20101027
  9. TRAZODONE HCL [Concomitant]
     Dosage: 50 MG, DAILY (1/D)
     Dates: end: 20101213

REACTIONS (6)
  - HYPERKINESIA [None]
  - BLOOD CREATINE PHOSPHOKINASE INCREASED [None]
  - HEPATIC FUNCTION ABNORMAL [None]
  - INAPPROPRIATE ANTIDIURETIC HORMONE SECRETION [None]
  - HYPERHIDROSIS [None]
  - HYPOKALAEMIA [None]
